FAERS Safety Report 8311366-4 (Version None)
Quarter: 2012Q2

REPORT INFORMATION
  Report Type: 
  Country: None (occurrence: None)
  Receive Date: 20120425
  Receipt Date: 20120413
  Transmission Date: 20120825
  Serious: Yes (Hospitalization)
  Sender: FDA-Public Use
  Company Number: CHPA2012US006464

PATIENT
  Age: 69 Year
  Sex: Female

DRUGS (7)
  1. ICY HOT [Concomitant]
     Indication: CHONDROPATHY
  2. COUMADIN [Concomitant]
     Indication: THROMBOSIS
     Dosage: 7.5 MG, QD
  3. ASCORBIC ACID [Concomitant]
  4. VOLTAREN [Suspect]
     Indication: ARTHRALGIA
     Dosage: UNK, 3-4 TIMES A DAY
     Route: 061
     Dates: end: 20120101
  5. DRUG THERAPY NOS [Concomitant]
     Indication: CHONDROPATHY
     Route: 061
  6. CALCIUM [Concomitant]
  7. VITAMIN D [Concomitant]

REACTIONS (4)
  - OFF LABEL USE [None]
  - CONCOMITANT DISEASE AGGRAVATED [None]
  - THERAPEUTIC RESPONSE UNEXPECTED [None]
  - THROMBOSIS [None]
